FAERS Safety Report 4607067-6 (Version None)
Quarter: 2005Q1

REPORT INFORMATION
  Report Type: 
  Country: None (occurrence: None)
  Receive Date: 20050310
  Receipt Date: 20050221
  Transmission Date: 20050727
  Serious: No
  Sender: FDA-Public Use
  Company Number: B0373014B

PATIENT
  Sex: Female

DRUGS (3)
  1. LITHIUM CARBONATE [Suspect]
     Dosage: TWICE PER DAY / TRANSPLACEN
     Route: 064
  2. SEMISODIUM VALPROATE [Concomitant]
  3. INHALER [Concomitant]

REACTIONS (13)
  - BRADYCARDIA NEONATAL [None]
  - CONGENITAL ANOMALY [None]
  - DRUG EXPOSURE DURING PREGNANCY [None]
  - DYSPHAGIA [None]
  - FEEDING DISORDER [None]
  - HYPOKINESIA NEONATAL [None]
  - HYPOTONIA [None]
  - MICROGNATHIA [None]
  - NEONATAL TACHYPNOEA [None]
  - POOR SUCKING REFLEX [None]
  - TEMPERATURE REGULATION DISORDER [None]
  - THERAPEUTIC AGENT TOXICITY [None]
  - TRICUSPID VALVE INCOMPETENCE [None]
